FAERS Safety Report 17686125 (Version 3)
Quarter: 2020Q3

REPORT INFORMATION
  Report Type: Report from Study
  Country: CH (occurrence: CH)
  Receive Date: 20200420
  Receipt Date: 20200702
  Transmission Date: 20201102
  Serious: Yes (Other)
  Sender: FDA-Public Use
  Company Number: CH-BAYER-2020-057255

PATIENT
  Age: 39 Year
  Sex: Female
  Weight: 80 kg

DRUGS (1)
  1. KYLEENA [Suspect]
     Active Substance: LEVONORGESTREL
     Indication: CONTRACEPTION
     Dosage: 17.5 ?G PER DAY, CONTINUOUSLY
     Route: 015
     Dates: start: 20170616, end: 20200504

REACTIONS (5)
  - Device expulsion [Recovered/Resolved]
  - Pregnancy with contraceptive device [Recovered/Resolved]
  - Drug ineffective [None]
  - Abortion spontaneous [Recovered/Resolved]
  - Post abortion haemorrhage [None]

NARRATIVE: CASE EVENT DATE: 20200323
